FAERS Safety Report 8837232 (Version 1)
Quarter: 2012Q4

REPORT INFORMATION
  Report Type: 
  Country: JP (occurrence: JP)
  Receive Date: 20121011
  Receipt Date: 20121011
  Transmission Date: 20130627
  Serious: Yes (Hospitalization)
  Sender: FDA-Public Use
  Company Number: JP-ROCHE-792899

PATIENT
  Age: 55 Year
  Sex: Female

DRUGS (29)
  1. MABTHERA [Suspect]
     Indication: SYSTEMIC LUPUS ERYTHEMATOSUS
     Dosage: 490 MG, UNK
     Route: 042
  2. MABTHERA [Suspect]
     Route: 042
  3. MABTHERA [Suspect]
     Route: 042
  4. MABTHERA [Suspect]
     Route: 042
  5. PREDONINE [Suspect]
     Indication: ANAEMIA HAEMOLYTIC AUTOIMMUNE
     Dosage: 50 MG, QD
     Route: 065
  6. BUPRENORPHINE HYDROCHLORIDE [Suspect]
     Indication: PRODUCT USED FOR UNKNOWN INDICATION
     Route: 065
  7. SOLU-MEDROL [Concomitant]
     Indication: ANAEMIA HAEMOLYTIC AUTOIMMUNE
     Dosage: 1 G, QD
     Route: 065
     Dates: start: 20101111, end: 20101113
  8. SOLU-MEDROL [Concomitant]
     Dosage: 1 G, QD
     Route: 065
     Dates: start: 20101111, end: 20101113
  9. PROGRAF [Concomitant]
     Indication: ANAEMIA HAEMOLYTIC AUTOIMMUNE
     Dosage: 1.5 MG, UNK
     Route: 065
     Dates: start: 20101015, end: 20101110
  10. PROGRAF [Concomitant]
     Dosage: 1.5 MG, UNK
     Route: 065
     Dates: start: 20101015, end: 20101110
  11. PROGRAF [Concomitant]
     Dosage: 2 MG, QD
     Route: 065
     Dates: start: 20101015, end: 20101110
  12. PROGRAF [Concomitant]
     Dosage: 2 MG, QD
     Route: 065
     Dates: start: 20101015, end: 20101110
  13. NEORAL [Concomitant]
     Indication: ANAEMIA HAEMOLYTIC AUTOIMMUNE
     Dosage: 25 G, QD
     Route: 065
     Dates: start: 20101228, end: 20110101
  14. NEORAL [Concomitant]
     Dosage: 25 G, QD
     Route: 065
     Dates: start: 20101228, end: 20110101
  15. DENOSINE [Concomitant]
     Indication: CYTOMEGALOVIRUS INFECTION
     Dosage: 400 MG, QD
     Route: 042
     Dates: start: 20110217, end: 20110222
  16. DENOSINE [Concomitant]
     Dosage: 400 MG, QD
     Route: 042
     Dates: start: 20110217, end: 20110222
  17. FIRSTCIN [Concomitant]
     Indication: PNEUMONIA
     Dosage: 2 G, QD
     Route: 042
     Dates: start: 20110224, end: 20110301
  18. FIRSTCIN [Concomitant]
     Dosage: 2 G, QD
     Route: 042
     Dates: start: 20110224, end: 20110301
  19. ELCITONIN [Concomitant]
     Indication: OSTEOPOROSIS
     Dosage: 1 ML, 1/MONTH
     Route: 058
     Dates: start: 20110201, end: 20110429
  20. ELCITONIN [Concomitant]
     Dosage: 1 ML, 1/MONTH
     Route: 058
     Dates: start: 20110201, end: 20110429
  21. ALFAROL [Concomitant]
     Indication: OSTEOPOROSIS
     Dosage: 0.5 UG, QD
     Route: 048
  22. ULCERLMIN [Concomitant]
     Indication: GASTRIC ULCER
     Dosage: 3 G, QD
     Route: 048
  23. HORIZON [Concomitant]
     Indication: ANXIETY DISORDER
     Dosage: 2 MG, QD
     Route: 048
     Dates: start: 20101018, end: 20110301
  24. HORIZON [Concomitant]
     Dosage: 2 MG, QD
     Route: 048
     Dates: start: 20101018, end: 20110301
  25. URSO [Concomitant]
     Indication: LIVER DISORDER
     Dosage: 600 MG, QD
     Route: 048
     Dates: start: 20101227, end: 20110228
  26. URSO [Concomitant]
     Dosage: 600 MG, QD
     Route: 048
     Dates: start: 20101227, end: 20110228
  27. SULFAMETHOXAZOLE/TRIMETHOPRIM [Concomitant]
     Indication: PROPHYLAXIS
     Dosage: UNK
     Route: 048
     Dates: start: 20101224, end: 20110228
  28. FUNGIZONE [Concomitant]
     Indication: PROPHYLAXIS
     Dosage: 3 ML, QD
     Route: 048
     Dates: start: 20110112, end: 201103
  29. POLYGLOBIN N [Concomitant]

REACTIONS (3)
  - White blood cell count decreased [Recovering/Resolving]
  - Gastric ulcer [Recovering/Resolving]
  - Enterocolitis haemorrhagic [Recovering/Resolving]
